FAERS Safety Report 9267038 (Version 2)
Quarter: 2013Q2

REPORT INFORMATION
  Report Type: Spontaneous
  Country: US (occurrence: US)
  Receive Date: 20130502
  Receipt Date: 20130613
  Transmission Date: 20140414
  Serious: Yes (Other)
  Sender: FDA-Public Use
  Company Number: US-PFIZER INC-2013136376

PATIENT
  Sex: 0

DRUGS (4)
  1. LYRICA [Suspect]
     Indication: FIBROMYALGIA
     Dosage: 200 MG, 2X/DAY
  2. LYRICA [Suspect]
     Indication: BACK PAIN
  3. LYRICA [Suspect]
     Indication: ARTHRALGIA
  4. LYRICA [Suspect]
     Indication: ARTHRALGIA

REACTIONS (9)
  - Off label use [Unknown]
  - Road traffic accident [Unknown]
  - Back pain [Unknown]
  - Irritable bowel syndrome [Unknown]
  - Drug ineffective for unapproved indication [Unknown]
  - Musculoskeletal chest pain [Unknown]
  - Ligament sprain [Unknown]
  - Pain [Unknown]
  - Fall [Unknown]
